FAERS Safety Report 4668782-1 (Version None)
Quarter: 2005Q2

REPORT INFORMATION
  Report Type: 
  Country: None (occurrence: None)
  Receive Date: 20050519
  Receipt Date: 20050511
  Transmission Date: 20051028
  Serious: Yes (Hospitalization, Other)
  Sender: FDA-Public Use
  Company Number: 2005-01627

PATIENT
  Age: 54 Year
  Sex: Female

DRUGS (1)
  1. FERRLECIT [Suspect]
     Indication: ANAEMIA
     Dosage: 62.5 MG, DAILY, INTRAVENOUS
     Route: 042
     Dates: start: 20050408, end: 20050420

REACTIONS (1)
  - PANCYTOPENIA [None]
